FAERS Safety Report 11953871 (Version 1)
Quarter: 2016Q1

REPORT INFORMATION
  Report Type: Spontaneous
  Country: US (occurrence: US)
  Receive Date: 20160126
  Receipt Date: 20160126
  Transmission Date: 20160526
  Serious: No
  Sender: FDA-Public Use
  Company Number: US-PFIZER INC-2016040225

PATIENT
  Age: 20 Year
  Sex: Male
  Weight: 172.36 kg

DRUGS (1)
  1. VIAGRA [Suspect]
     Active Substance: SILDENAFIL CITRATE
     Dates: start: 201511, end: 201511

REACTIONS (3)
  - Dysuria [Unknown]
  - Expired product administered [Unknown]
  - Chromaturia [Unknown]

NARRATIVE: CASE EVENT DATE: 201511
